FAERS Safety Report 18540334 (Version 5)
Quarter: 2020Q4

REPORT INFORMATION
  Report Type: Report from Study
  Country: CA (occurrence: CA)
  Receive Date: 20201124
  Receipt Date: 20201221
  Transmission Date: 20210114
  Serious: Yes (Hospitalization, Other)
  Sender: FDA-Public Use
  Company Number: CA-SAMSUNG BIOEPIS-SB-2020-20553

PATIENT
  Age: 67 Year
  Sex: Female
  Weight: 82 kg

DRUGS (2)
  1. TYLENOL [Concomitant]
     Active Substance: ACETAMINOPHEN
     Indication: PREMEDICATION
     Dosage: UNKNOWN
     Route: 065
  2. RENFLEXIS [Suspect]
     Active Substance: INFLIXIMAB-ABDA
     Indication: PSORIATIC ARTHROPATHY
     Route: 042
     Dates: start: 20191003

REACTIONS (9)
  - Sinusitis [Recovering/Resolving]
  - Back disorder [Unknown]
  - Blood pressure abnormal [Unknown]
  - Bronchitis [Recovering/Resolving]
  - Sinusitis [Unknown]
  - Suspected COVID-19 [Unknown]
  - Off label use [Unknown]
  - Lower respiratory tract infection [Unknown]
  - Product use issue [Unknown]

NARRATIVE: CASE EVENT DATE: 20200630
